FAERS Safety Report 21519613 (Version 1)
Quarter: 2022Q4

REPORT INFORMATION
  Report Type: Spontaneous
  Country: US (occurrence: None)
  Receive Date: 20221027
  Receipt Date: 20221027
  Transmission Date: 20230113
  Serious: Yes (Death)
  Sender: FDA-Public Use
  Company Number: None

PATIENT
  Age: 76 Year
  Sex: Male
  Weight: 83 kg

DRUGS (1)
  1. LAMOTRIGINE [Suspect]
     Active Substance: LAMOTRIGINE
     Indication: Seizure
     Dosage: OTHER FREQUENCY : PM;?
     Route: 050
     Dates: start: 20220917, end: 20220922

REACTIONS (14)
  - Mental status changes [None]
  - Status epilepticus [None]
  - Respiratory failure [None]
  - Hepatic enzyme increased [None]
  - Jaundice cholestatic [None]
  - Liver injury [None]
  - Portal vein thrombosis [None]
  - Renal failure [None]
  - Decubitus ulcer [None]
  - Aspartate aminotransferase increased [None]
  - Alanine aminotransferase increased [None]
  - Blood alkaline phosphatase increased [None]
  - Blood bilirubin increased [None]
  - Blood glucose increased [None]

NARRATIVE: CASE EVENT DATE: 20220922
